FAERS Safety Report 16881086 (Version 1)
Quarter: 2019Q4

REPORT INFORMATION
  Report Type: Spontaneous
  Country: FR (occurrence: FR)
  Receive Date: 20191003
  Receipt Date: 20191003
  Transmission Date: 20200122
  Serious: Yes (Death, Other)
  Sender: FDA-Public Use
  Company Number: FR-AUROBINDO-AUR-APL-2019-063714

PATIENT
  Age: 60 Year
  Sex: Female

DRUGS (5)
  1. EVEROLIMUS. [Suspect]
     Active Substance: EVEROLIMUS
     Indication: INTRADUCTAL PROLIFERATIVE BREAST LESION
     Dosage: UNK
     Route: 065
  2. PALBOCICLIB [Concomitant]
     Active Substance: PALBOCICLIB
     Indication: INTRADUCTAL PROLIFERATIVE BREAST LESION
     Dosage: UNK
     Route: 065
  3. VINORELBINE [Suspect]
     Active Substance: VINORELBINE TARTRATE
     Indication: BREAST CANCER METASTATIC
     Dosage: 30 MILLIGRAM, DAILY
     Route: 048
  4. FULVESTRANT. [Concomitant]
     Active Substance: FULVESTRANT
     Indication: INTRADUCTAL PROLIFERATIVE BREAST LESION
     Dosage: UNK
     Route: 065
  5. CAPECITABINE. [Suspect]
     Active Substance: CAPECITABINE
     Indication: MYELODYSPLASTIC SYNDROME
     Dosage: 2250 MILLIGRAM, DAILY (1000 MG THE MORNING AND 1250 MG THE EVENING)
     Route: 048

REACTIONS (18)
  - Mucosal inflammation [Unknown]
  - Sepsis [Not Recovered/Not Resolved]
  - General physical condition abnormal [Not Recovered/Not Resolved]
  - Nausea [Unknown]
  - Vomiting [Unknown]
  - Renal impairment [Not Recovered/Not Resolved]
  - Thrombocytopenia [Not Recovered/Not Resolved]
  - Vitamin K decreased [Not Recovered/Not Resolved]
  - Malignant neoplasm progression [Unknown]
  - Erythema [Unknown]
  - Hepatocellular injury [Fatal]
  - Neutropenia [Not Recovered/Not Resolved]
  - Palmar-plantar erythrodysaesthesia syndrome [Unknown]
  - Hepatic function abnormal [Not Recovered/Not Resolved]
  - Decreased appetite [Unknown]
  - Dermatitis exfoliative generalised [Unknown]
  - General physical health deterioration [Unknown]
  - Intraductal proliferative breast lesion [Unknown]
